FAERS Safety Report 4889875-X (Version None)
Quarter: 2006Q1

REPORT INFORMATION
  Report Type: 
  Country: None (occurrence: None)
  Receive Date: 20060124
  Receipt Date: 20051005
  Transmission Date: 20060701
  Serious: Yes (Hospitalization, Disabling)
  Sender: FDA-Public Use
  Company Number: US-MERCK-0510USA04727

PATIENT
  Age: 27 Year
  Sex: Male
  Weight: 107 kg

DRUGS (3)
  1. VIOXX [Suspect]
     Indication: MUSCULOSKELETAL DISCOMFORT
     Route: 048
     Dates: start: 20020401, end: 20030901
  2. VIOXX [Suspect]
     Indication: ARTHRALGIA
     Route: 048
     Dates: start: 20020401, end: 20030901
  3. TWINLAB RIPPED FUEL WITH EPHEDRA [Concomitant]
     Route: 065

REACTIONS (4)
  - CARDIAC DISORDER [None]
  - COAGULOPATHY [None]
  - MYOCARDIAL INFARCTION [None]
  - VASOSPASM [None]
